FAERS Safety Report 8974050 (Version 1)
Quarter: 2012Q4

REPORT INFORMATION
  Report Type: 
  Country: US (occurrence: US)
  Receive Date: 20121218
  Receipt Date: 20121218
  Transmission Date: 20130627
  Serious: Yes (Hospitalization)
  Sender: FDA-Public Use
  Company Number: US-BRISTOL-MYERS SQUIBB COMPANY-16400897

PATIENT
  Age: 17 Year
  Sex: Female

DRUGS (1)
  1. ABILIFY [Suspect]
     Dosage: Dose decreased to 10 mg

REACTIONS (3)
  - Vision blurred [Unknown]
  - Psychomotor hyperactivity [Unknown]
  - Disturbance in attention [Unknown]
